FAERS Safety Report 15018782 (Version 1)
Quarter: 2018Q2

REPORT INFORMATION
  Report Type: Spontaneous
  Country: FR (occurrence: FR)
  Receive Date: 20180616
  Receipt Date: 20180616
  Transmission Date: 20180711
  Serious: Yes (Other)
  Sender: FDA-Public Use
  Company Number: FR-AUROBINDO-AUR-APL-2018-030918

PATIENT
  Age: 34 Year
  Sex: Female
  Weight: 83 kg

DRUGS (2)
  1. LAMOTRIGINE ARROW CHEWABLE OR DISPERSIBLE TABLETS 200 MG [Suspect]
     Active Substance: LAMOTRIGINE
     Indication: BIPOLAR DISORDER
     Dosage: 200 MILLIGRAM, DAILY
     Route: 048
     Dates: start: 20140901
  2. COMPLEMENT (NAPROXEN SODIUM) [Interacting]
     Active Substance: NAPROXEN SODIUM
     Indication: PRODUCT USED FOR UNKNOWN INDICATION
     Dosage: 2 WEEKS
     Route: 048
     Dates: start: 20180205

REACTIONS (2)
  - Bipolar disorder [Recovered/Resolved]
  - Condition aggravated [Recovered/Resolved]

NARRATIVE: CASE EVENT DATE: 20180205
